FAERS Safety Report 6590251-2 (Version None)
Quarter: 2010Q1

REPORT INFORMATION
  Report Type: 
  Country: None (occurrence: None)
  Receive Date: 20100219
  Receipt Date: 20100208
  Transmission Date: 20100710
  Serious: Yes (Other)
  Sender: FDA-Public Use
  Company Number: PHEH2010US02196

PATIENT
  Sex: Female

DRUGS (8)
  1. RECLAST [Suspect]
     Dosage: UNK
     Dates: start: 20090701
  2. SIMVASTATIN [Concomitant]
  3. M.V.I. [Concomitant]
  4. CALCIUM [Concomitant]
  5. FOLIC ACID [Concomitant]
  6. FISH OIL [Concomitant]
  7. VITAMIN C [Concomitant]
  8. VITAMIN E [Concomitant]

REACTIONS (7)
  - ARTHRALGIA [None]
  - CYANOSIS [None]
  - ERYTHEMA [None]
  - HEART RATE INCREASED [None]
  - JOINT RANGE OF MOTION DECREASED [None]
  - OEDEMA PERIPHERAL [None]
  - TENDERNESS [None]
